FAERS Safety Report 16121221 (Version 1)
Quarter: 2019Q1

REPORT INFORMATION
  Report Type: Spontaneous
  Country: FR (occurrence: FR)
  Receive Date: 20190327
  Receipt Date: 20190327
  Transmission Date: 20190418
  Serious: Yes (Hospitalization)
  Sender: FDA-Public Use
  Company Number: FR-ACCORD-115480

PATIENT
  Age: 60 Year
  Sex: Female
  Weight: 86 kg

DRUGS (2)
  1. FLECAINE L.P. [Suspect]
     Active Substance: FLECAINIDE
     Dosage: STRENGTH: 100 MG
     Route: 048
     Dates: start: 20180716
  2. AMLODIPINE [Suspect]
     Active Substance: AMLODIPINE BESYLATE
     Route: 048
     Dates: start: 20180716

REACTIONS (3)
  - Bifascicular block [Recovered/Resolved]
  - Poisoning deliberate [Unknown]
  - Altered state of consciousness [Recovered/Resolved]

NARRATIVE: CASE EVENT DATE: 20180716
